FAERS Safety Report 7366656-9 (Version None)
Quarter: 2011Q1

REPORT INFORMATION
  Report Type: 
  Country: None (occurrence: None)
  Receive Date: 20110317
  Receipt Date: 20110317
  Transmission Date: 20110831
  Serious: Yes (Life-Threatening, Hospitalization)
  Sender: FDA-Public Use
  Company Number: None

PATIENT
  Sex: Male
  Weight: 66.13 kg

DRUGS (3)
  1. FERROUS SULFATE TAB [Concomitant]
  2. ALIMTA [Suspect]
     Indication: NON-SMALL CELL LUNG CANCER METASTATIC
     Dosage: 500 MG/M 2 1 X EVERY 3 WEEKS IV
     Route: 042
     Dates: start: 20101001, end: 20110117
  3. OXYCODONE/ACETAMINOPHEN (PERCOCET) [Concomitant]

REACTIONS (9)
  - JOINT INJURY [None]
  - HYPOTENSION [None]
  - LUNG INFILTRATION [None]
  - INTERNATIONAL NORMALISED RATIO DECREASED [None]
  - COMMINUTED FRACTURE [None]
  - PULMONARY EMBOLISM [None]
  - DEEP VEIN THROMBOSIS [None]
  - ANKLE FRACTURE [None]
  - FALL [None]
